FAERS Safety Report 11441367 (Version 1)
Quarter: 2015Q3

REPORT INFORMATION
  Report Type: Spontaneous
  Country: US (occurrence: US)
  Receive Date: 20150821
  Receipt Date: 20150821
  Transmission Date: 20151125
  Serious: No
  Sender: FDA-Public Use
  Company Number: US-ELI_LILLY_AND_COMPANY-US200806004073

PATIENT
  Age: 60 Year
  Sex: Female

DRUGS (1)
  1. CYMBALTA [Suspect]
     Active Substance: DULOXETINE HYDROCHLORIDE
     Indication: DEPRESSION
     Dosage: 20 MG, DAILY (1/D)
     Dates: start: 200802

REACTIONS (9)
  - Balance disorder [Unknown]
  - Hyperhidrosis [Unknown]
  - Eye pain [Unknown]
  - Anxiety [Unknown]
  - Dizziness [Unknown]
  - Feeling abnormal [Unknown]
  - Depression [Unknown]
  - Panic attack [Unknown]
  - Muscle contracture [Unknown]

NARRATIVE: CASE EVENT DATE: 2008
